FAERS Safety Report 7624177-X (Version None)
Quarter: 2011Q3

REPORT INFORMATION
  Report Type: 
  Country: None (occurrence: None)
  Receive Date: 20110720
  Receipt Date: 20110720
  Transmission Date: 20111222
  Serious: Yes (Life-Threatening)
  Sender: FDA-Public Use
  Company Number: None

PATIENT
  Sex: Female
  Weight: 92.986 kg

DRUGS (1)
  1. VICTOZA [Suspect]
     Indication: DIABETES MELLITUS
     Dosage: 1.8 MG
     Route: 003
     Dates: start: 20101101, end: 20110601

REACTIONS (2)
  - METASTASES TO PERITONEUM [None]
  - ENDOMETRIAL CANCER METASTATIC [None]
